FAERS Safety Report 5375980-0 (Version None)
Quarter: 2007Q3

REPORT INFORMATION
  Report Type: 
  Country: None (occurrence: None)
  Receive Date: 20070702
  Receipt Date: 20070621
  Transmission Date: 20080115
  Serious: Yes (Hospitalization)
  Sender: FDA-Public Use
  Company Number: CA-JNJFOC-20070605086

PATIENT
  Sex: Male
  Weight: 49 kg

DRUGS (4)
  1. INFLIXIMAB [Suspect]
     Indication: CROHN'S DISEASE
     Route: 042
  2. METHOTREXATE [Suspect]
     Indication: CROHN'S DISEASE
  3. PLACEBO [Suspect]
     Indication: CROHN'S DISEASE
  4. PREDNISONE [Concomitant]

REACTIONS (2)
  - ABDOMINAL DISTENSION [None]
  - ABDOMINAL PAIN [None]
